FAERS Safety Report 6456042-8 (Version None)
Quarter: 2009Q4

REPORT INFORMATION
  Report Type: 
  Country: None (occurrence: None)
  Receive Date: 20091125
  Receipt Date: 20091117
  Transmission Date: 20100525
  Serious: Yes (Hospitalization)
  Sender: FDA-Public Use
  Company Number: US-JNJFOC-20091105664

PATIENT
  Sex: Female
  Weight: 90.27 kg

DRUGS (1)
  1. REMICADE [Suspect]
     Indication: RHEUMATOID ARTHRITIS
     Dosage: DOSAGE = 3 VIALS
     Route: 042

REACTIONS (3)
  - EATING DISORDER [None]
  - FLUID INTAKE REDUCED [None]
  - RENAL FAILURE ACUTE [None]
